FAERS Safety Report 11344238 (Version 1)
Quarter: 2015Q3

REPORT INFORMATION
  Report Type: Spontaneous
  Country: US (occurrence: None)
  Receive Date: 20150803
  Receipt Date: 20150803
  Transmission Date: 20151125
  Serious: Yes (Disabling)
  Sender: FDA-Public Use
  Company Number: None

PATIENT
  Age: 61 Year
  Sex: Male
  Weight: 68.95 kg

DRUGS (1)
  1. CRESTOR [Suspect]
     Active Substance: ROSUVASTATIN CALCIUM
     Dosage: DAILY FOR LIFE  ONCE DAILY  TAKEN BY MOUTH
     Route: 048

REACTIONS (6)
  - Confusional state [None]
  - Spinal cord injury [None]
  - Post polio syndrome [None]
  - Dementia [None]
  - Pain [None]
  - Suicidal ideation [None]
